FAERS Safety Report 16839855 (Version 2)
Quarter: 2019Q3

REPORT INFORMATION
  Report Type: Spontaneous
  Country: FR (occurrence: FR)
  Receive Date: 20190923
  Receipt Date: 20190925
  Transmission Date: 20191005
  Serious: Yes (Other)
  Sender: FDA-Public Use
  Company Number: FR-PFIZER INC-2019410461

PATIENT
  Age: 69 Year
  Sex: Male

DRUGS (2)
  1. IMETH [Suspect]
     Active Substance: METHOTREXATE SODIUM
     Indication: CUTANEOUS T-CELL LYMPHOMA
     Dosage: 8 DF, WEEKLY
     Route: 048
     Dates: start: 20181201, end: 20190227
  2. OPDIVO [Interacting]
     Active Substance: NIVOLUMAB
     Indication: BRONCHIAL CARCINOMA
     Dosage: 240 MG, 2X/WEEK
     Route: 041
     Dates: start: 20171026, end: 20190110

REACTIONS (4)
  - Drug interaction [Unknown]
  - Dyspnoea [Recovering/Resolving]
  - Lung disorder [Recovering/Resolving]
  - Weight decreased [Recovering/Resolving]

NARRATIVE: CASE EVENT DATE: 20181201
